FAERS Safety Report 8074246-8 (Version None)
Quarter: 2012Q1

REPORT INFORMATION
  Report Type: 
  Country: None (occurrence: None)
  Receive Date: 20120120
  Receipt Date: 20120110
  Transmission Date: 20120608
  Serious: Yes (Other)
  Sender: FDA-Public Use
  Company Number: AUR-APL-2012-00518

PATIENT
  Age: 52 Year
  Sex: Male
  Weight: 129 kg

DRUGS (16)
  1. LISINOPRIL [Concomitant]
  2. METFORMIN HCL [Suspect]
     Indication: DIABETES MELLITUS
     Dosage: 2000 MG (1000 MG, 2 IN 1 D) UNKNOWN
  3. IBUPROFEN [Concomitant]
  4. HYDROCHLOROTHIAZIDE [Concomitant]
  5. LYRICA [Suspect]
     Indication: NEURALGIA
     Dosage: 100 MG (50 MG, 2 IN 1 D), ORAL 25 MG (50 MG, 1 IN 2 D), UNKNOWN
     Dates: start: 20110401, end: 20110701
  6. LYRICA [Suspect]
     Indication: MUSCULOSKELETAL PAIN
     Dosage: 100 MG (50 MG, 2 IN 1 D), ORAL 25 MG (50 MG, 1 IN 2 D), UNKNOWN
     Dates: start: 20110401, end: 20110701
  7. LYRICA [Suspect]
     Indication: CARPAL TUNNEL SYNDROME
     Dosage: 100 MG (50 MG, 2 IN 1 D), ORAL 25 MG (50 MG, 1 IN 2 D), UNKNOWN
     Dates: start: 20110401, end: 20110701
  8. LYRICA [Suspect]
     Indication: NERVE INJURY
     Dosage: 100 MG (50 MG, 2 IN 1 D), ORAL 25 MG (50 MG, 1 IN 2 D), UNKNOWN
     Dates: start: 20110401, end: 20110701
  9. LYRICA [Suspect]
     Indication: NEUROPATHY PERIPHERAL
     Dosage: 100 MG (50 MG, 2 IN 1 D), ORAL 25 MG (50 MG, 1 IN 2 D), UNKNOWN
     Dates: start: 20110401, end: 20110701
  10. LYRICA [Suspect]
     Indication: NEURALGIA
     Dosage: 100 MG (50 MG, 2 IN 1 D), ORAL 25 MG (50 MG, 1 IN 2 D), UNKNOWN
     Dates: start: 20110701
  11. LYRICA [Suspect]
     Indication: MUSCULOSKELETAL PAIN
     Dosage: 100 MG (50 MG, 2 IN 1 D), ORAL 25 MG (50 MG, 1 IN 2 D), UNKNOWN
     Dates: start: 20110701
  12. LYRICA [Suspect]
     Indication: CARPAL TUNNEL SYNDROME
     Dosage: 100 MG (50 MG, 2 IN 1 D), ORAL 25 MG (50 MG, 1 IN 2 D), UNKNOWN
     Dates: start: 20110701
  13. LYRICA [Suspect]
     Indication: NERVE INJURY
     Dosage: 100 MG (50 MG, 2 IN 1 D), ORAL 25 MG (50 MG, 1 IN 2 D), UNKNOWN
     Dates: start: 20110701
  14. LYRICA [Suspect]
     Indication: NEUROPATHY PERIPHERAL
     Dosage: 100 MG (50 MG, 2 IN 1 D), ORAL 25 MG (50 MG, 1 IN 2 D), UNKNOWN
     Dates: start: 20110701
  15. METOPROLOL [Concomitant]
  16. LOPRESSOR [Concomitant]

REACTIONS (30)
  - NEURALGIA [None]
  - MUSCLE SPASMS [None]
  - PYREXIA [None]
  - GINGIVAL DISORDER [None]
  - DENTAL CARIES [None]
  - NERVOUS SYSTEM DISORDER [None]
  - TOOTH FRACTURE [None]
  - NECK PAIN [None]
  - MUSCLE TIGHTNESS [None]
  - PARAESTHESIA [None]
  - NERVE INJURY [None]
  - SENSATION OF HEAVINESS [None]
  - OEDEMA PERIPHERAL [None]
  - EYE SWELLING [None]
  - PAIN IN EXTREMITY [None]
  - DRUG DOSE OMISSION [None]
  - EYE PAIN [None]
  - VISUAL IMPAIRMENT [None]
  - HEADACHE [None]
  - MUSCLE TWITCHING [None]
  - VISION BLURRED [None]
  - MUSCLE CONTRACTIONS INVOLUNTARY [None]
  - TOOTH DISORDER [None]
  - LOCALISED OEDEMA [None]
  - BACK PAIN [None]
  - HYPOAESTHESIA [None]
  - MUSCULOSKELETAL PAIN [None]
  - PAIN [None]
  - FATIGUE [None]
  - PRODUCT QUALITY ISSUE [None]
